FAERS Safety Report 7282938-3 (Version None)
Quarter: 2011Q1

REPORT INFORMATION
  Report Type: 
  Country: None (occurrence: None)
  Receive Date: 20110209
  Receipt Date: 20110125
  Transmission Date: 20110831
  Serious: Yes (Hospitalization, Disabling)
  Sender: FDA-Public Use
  Company Number: RO-SANOFI-AVENTIS-2011SA007704

PATIENT
  Age: 60 Year
  Sex: Female
  Weight: 66 kg

DRUGS (4)
  1. ENDOXAN [Concomitant]
     Dates: start: 20101104, end: 20101106
  2. EPOETIN BETA [Concomitant]
     Dates: start: 20101108
  3. FLUDARABINE PHOSPHATE [Suspect]
     Dosage: ADMINISTERED VIA ORAL ROUTE AT A DOSE OF 50 MG QDX3
     Route: 048
     Dates: start: 20100726, end: 20101106
  4. NEULASTA [Concomitant]
     Dates: start: 20101008, end: 20101124

REACTIONS (5)
  - MENINGISM [None]
  - APHASIA [None]
  - NEUROPATHY PERIPHERAL [None]
  - HEMIPARESIS [None]
  - CONFUSIONAL STATE [None]
